FAERS Safety Report 14734577 (Version 1)
Quarter: 2018Q2

REPORT INFORMATION
  Report Type: Spontaneous
  Country: US (occurrence: US)
  Receive Date: 20180403
  Receipt Date: 20180403
  Transmission Date: 20180711
  Serious: No
  Sender: FDA-Public Use
  Company Number: None

PATIENT
  Age: 70 Year
  Sex: Male
  Weight: 75.9 kg

DRUGS (2)
  1. EXJADE [Concomitant]
     Active Substance: DEFERASIROX
  2. INTRON A [Suspect]
     Active Substance: INTERFERON ALFA-2B
     Dates: end: 20120528

REACTIONS (2)
  - Asthenia [None]
  - Confusional state [None]

NARRATIVE: CASE EVENT DATE: 20120525
